FAERS Safety Report 9390256 (Version 1)
Quarter: 2013Q3

REPORT INFORMATION
  Report Type: Report from Study
  Country: CO (occurrence: CO)
  Receive Date: 20130708
  Receipt Date: 20130708
  Transmission Date: 20140515
  Serious: Yes (Death)
  Sender: FDA-Public Use
  Company Number: CO-ROCHE-1245497

PATIENT
  Age: 72 Year
  Sex: Female

DRUGS (1)
  1. AVASTIN [Suspect]
     Indication: LUNG NEOPLASM MALIGNANT
     Route: 042
     Dates: start: 20110414

REACTIONS (2)
  - Cardio-respiratory arrest [Fatal]
  - Cerebrovascular accident [Fatal]
